FAERS Safety Report 4449592-7 (Version None)
Quarter: 2004Q3

REPORT INFORMATION
  Report Type: 
  Country: None (occurrence: None)
  Receive Date: 20040913
  Receipt Date: 20040913
  Transmission Date: 20050211
  Serious: Yes (Hospitalization)
  Sender: FDA-Public Use
  Company Number: None

PATIENT
  Sex: Male

DRUGS (1)
  1. DEPAKOTE [Suspect]
     Indication: CONVULSION
     Dosage: 1625 MG /DAY DIVIDED ORAL
     Route: 048
     Dates: start: 20030701, end: 20040622

REACTIONS (1)
  - PANCREATITIS [None]
